FAERS Safety Report 19654272 (Version 7)
Quarter: 2022Q2

REPORT INFORMATION
  Report Type: Report from Study
  Country: CH (occurrence: CH)
  Receive Date: 20210803
  Receipt Date: 20220606
  Transmission Date: 20220721
  Serious: Yes (Death, Life-Threatening, Hospitalization, Other)
  Sender: FDA-Public Use
  Company Number: CH-GILEAD-2021-0542916

PATIENT
  Age: 56 Year
  Sex: Female
  Weight: 100 kg

DRUGS (34)
  1. SACITUZUMAB GOVITECAN [Suspect]
     Active Substance: SACITUZUMAB GOVITECAN
     Indication: Breast cancer metastatic
     Dosage: 970 MG
     Route: 042
     Dates: start: 20210708, end: 20210708
  2. SACITUZUMAB GOVITECAN [Suspect]
     Active Substance: SACITUZUMAB GOVITECAN
     Dosage: 900 MG
     Route: 042
     Dates: start: 20210715, end: 20210715
  3. SACITUZUMAB GOVITECAN [Suspect]
     Active Substance: SACITUZUMAB GOVITECAN
     Dosage: 600 MG
     Route: 042
     Dates: start: 20210812, end: 20210812
  4. SACITUZUMAB GOVITECAN [Suspect]
     Active Substance: SACITUZUMAB GOVITECAN
     Dosage: 600 MG
     Route: 042
     Dates: start: 20210819, end: 20210819
  5. SACITUZUMAB GOVITECAN [Suspect]
     Active Substance: SACITUZUMAB GOVITECAN
     Dosage: 400 MG
     Route: 042
     Dates: start: 20210902, end: 20210902
  6. SACITUZUMAB GOVITECAN [Suspect]
     Active Substance: SACITUZUMAB GOVITECAN
     Dosage: 400 MG
     Route: 042
     Dates: start: 20210909, end: 20210909
  7. SACITUZUMAB GOVITECAN [Suspect]
     Active Substance: SACITUZUMAB GOVITECAN
     Dosage: 450 MG
     Route: 042
     Dates: start: 20210923, end: 20210923
  8. SACITUZUMAB GOVITECAN [Suspect]
     Active Substance: SACITUZUMAB GOVITECAN
     Dosage: 450 MG
     Route: 042
     Dates: start: 20210930, end: 20210930
  9. SACITUZUMAB GOVITECAN [Suspect]
     Active Substance: SACITUZUMAB GOVITECAN
     Dosage: UNK
     Route: 042
     Dates: end: 20220404
  10. SACITUZUMAB GOVITECAN [Suspect]
     Active Substance: SACITUZUMAB GOVITECAN
     Dosage: 10 MG/KG
     Route: 042
  11. XARELTO [Concomitant]
     Active Substance: RIVAROXABAN
     Indication: Deep vein thrombosis
  12. XARELTO [Concomitant]
     Active Substance: RIVAROXABAN
     Indication: Pulmonary embolism
  13. ATORVASTATIN [Concomitant]
     Active Substance: ATORVASTATIN
  14. CALCIUM\CHOLECALCIFEROL [Concomitant]
     Active Substance: CALCIUM\CHOLECALCIFEROL
  15. FEBUXOSTAT [Concomitant]
     Active Substance: FEBUXOSTAT
  16. PRIMPERAN [Concomitant]
     Active Substance: METOCLOPRAMIDE HYDROCHLORIDE
  17. PANTOPRAZOLE SODIUM [Concomitant]
     Active Substance: PANTOPRAZOLE SODIUM
  18. ZOLPIDEM [Concomitant]
     Active Substance: ZOLPIDEM TARTRATE
  19. FOLIC ACID [Concomitant]
     Active Substance: FOLIC ACID
     Dosage: UNK
     Dates: end: 20210828
  20. DEXAMETHASONE PHOSPHATE [Concomitant]
     Active Substance: DEXAMETHASONE PHOSPHATE
  21. HYDROXYZINE PAMOATE [Concomitant]
     Active Substance: HYDROXYZINE PAMOATE
  22. DAFALGAN [Concomitant]
     Active Substance: ACETAMINOPHEN
  23. TRAMADOL [Concomitant]
     Active Substance: TRAMADOL
  24. BUTYLSCOPOLAMINE BROMIDE [Concomitant]
     Active Substance: BUTYLSCOPOLAMINE BROMIDE
     Indication: Muscle spasms
     Dosage: UNK
     Route: 048
     Dates: start: 20210826, end: 20220422
  25. SCOPOLAMINE [Concomitant]
     Active Substance: SCOPOLAMINE
  26. BACTRIM [Concomitant]
     Active Substance: SULFAMETHOXAZOLE\TRIMETHOPRIM
  27. PREDNISONE [Concomitant]
     Active Substance: PREDNISONE
  28. CEFTRIAXONE SODIUM [Concomitant]
     Active Substance: CEFTRIAXONE SODIUM
  29. CUBICINE [Concomitant]
  30. DEXAMETHASONE [Concomitant]
     Active Substance: DEXAMETHASONE
  31. MORPHINE [Concomitant]
     Active Substance: MORPHINE
  32. OXYGEN [Concomitant]
     Active Substance: OXYGEN
  33. RIVOTRIL [Concomitant]
     Active Substance: CLONAZEPAM
  34. FENTANYL [Concomitant]
     Active Substance: FENTANYL

REACTIONS (12)
  - Pneumonia [Fatal]
  - Staphylococcal sepsis [Fatal]
  - Disease progression [Fatal]
  - Agranulocytosis [Recovered/Resolved]
  - Pneumonia [Unknown]
  - Diarrhoea [Unknown]
  - Pancytopenia [Recovered/Resolved]
  - Enterocolitis infectious [Unknown]
  - Febrile neutropenia [Recovered/Resolved]
  - Thrombocytopenia [Recovered/Resolved]
  - Vomiting [Unknown]
  - Cough [Unknown]

NARRATIVE: CASE EVENT DATE: 20210701
